FAERS Safety Report 23704032 (Version 5)
Quarter: 2024Q2

REPORT INFORMATION
  Report Type: Report from Study
  Country: GB (occurrence: GB)
  Receive Date: 20240403
  Receipt Date: 20240516
  Transmission Date: 20240716
  Serious: Yes (Hospitalization, Other)
  Sender: FDA-Public Use
  Company Number: GB-JNJFOC-20240377113

PATIENT
  Age: 85 Year
  Sex: Male

DRUGS (3)
  1. ERLEADA [Suspect]
     Active Substance: APALUTAMIDE
     Indication: Prostate cancer
     Route: 048
     Dates: start: 20221226, end: 20240409
  2. TAMSULOSIN [Concomitant]
     Active Substance: TAMSULOSIN
     Indication: Benign prostatic hyperplasia
     Route: 048
  3. EDOXABAN TOSYLATE [Concomitant]
     Active Substance: EDOXABAN TOSYLATE
     Indication: Anticoagulant therapy
     Route: 048
     Dates: start: 20240327

REACTIONS (4)
  - Peripheral swelling [Recovered/Resolved]
  - Atrial fibrillation [Not Recovered/Not Resolved]
  - Rash [Unknown]
  - Colonoscopy [Unknown]

NARRATIVE: CASE EVENT DATE: 20240201
